FAERS Safety Report 8200708-6 (Version None)
Quarter: 2012Q1

REPORT INFORMATION
  Report Type: 
  Country: None (occurrence: None)
  Receive Date: 20120312
  Receipt Date: 20120306
  Transmission Date: 20120608
  Serious: Yes (Death, Other)
  Sender: FDA-Public Use
  Company Number: GB-ASTELLAS-2012EU001711

PATIENT
  Age: 51 Year
  Sex: Female
  Weight: 60 kg

DRUGS (3)
  1. TACROLIMUS [Suspect]
     Indication: IMMUNOSUPPRESSION
     Dosage: UNK
     Route: 065
     Dates: start: 20070907
  2. EPREX [Suspect]
     Indication: NEPHROGENIC ANAEMIA
     Dosage: 2000 IU, 3XWEEKLY
     Route: 065
     Dates: start: 19921203, end: 19930609
  3. MYCOPHENOLATE MOFETIL [Suspect]
     Dosage: UNK
     Route: 065
     Dates: start: 20071112, end: 20110113

REACTIONS (5)
  - APLASIA PURE RED CELL [None]
  - DEATH [None]
  - ANTI-ERYTHROPOIETIN ANTIBODY NEGATIVE [None]
  - ERYTHROPOIESIS ABNORMAL [None]
  - DRUG INEFFECTIVE [None]
